FAERS Safety Report 25869782 (Version 1)
Quarter: 2025Q3

REPORT INFORMATION
  Report Type: Spontaneous
  Country: US (occurrence: None)
  Receive Date: 20250930
  Receipt Date: 20250930
  Transmission Date: 20251020
  Serious: No
  Sender: FDA-CTU
  Company Number: None

PATIENT
  Age: 46 Year
  Sex: Female

DRUGS (1)
  1. AMOXICILLIN\CLAVULANIC ACID [Suspect]
     Active Substance: AMOXICILLIN\CLAVULANIC ACID
     Indication: Ear infection
     Dosage: FREQUENCY : TWICE A DAY;?
     Route: 048
     Dates: start: 20250923, end: 20250927

REACTIONS (6)
  - Diarrhoea [None]
  - Feeling hot [None]
  - Dizziness [None]
  - Therapy interrupted [None]
  - Malaise [None]
  - Pruritus [None]

NARRATIVE: CASE EVENT DATE: 20250924
